FAERS Safety Report 10632520 (Version 1)
Quarter: 2014Q4

REPORT INFORMATION
  Report Type: Spontaneous
  Country: GB (occurrence: None)
  Receive Date: 20141203
  Receipt Date: 20141203
  Transmission Date: 20150529
  Serious: Yes (Other)
  Sender: FDA-Public Use
  Company Number: 2640566

PATIENT
  Age: 4 Year
  Sex: Male

DRUGS (1)
  1. VANCOMYCIN HYDROCHLORIDE. [Suspect]
     Active Substance: VANCOMYCIN HYDROCHLORIDE
     Indication: ANTIBIOTIC PROPHYLAXIS
     Dates: start: 20140710, end: 20140710

REACTIONS (5)
  - Hypersensitivity [None]
  - Cold sweat [None]
  - Contraindicated drug administered [None]
  - Vomiting [None]
  - Angioedema [None]

NARRATIVE: CASE EVENT DATE: 20140710
